FAERS Safety Report 15096300 (Version 1)
Quarter: 2018Q3

REPORT INFORMATION
  Report Type: Spontaneous
  Country: US (occurrence: US)
  Receive Date: 20180702
  Receipt Date: 20180702
  Transmission Date: 20181010
  Serious: No
  Sender: FDA-Public Use
  Company Number: US-PFIZER INC-2018264083

PATIENT
  Age: 50 Year
  Sex: Female

DRUGS (1)
  1. ATROPINE SULFATE/DIPHENOXYLATE HYDROCHLORIDE [Suspect]
     Active Substance: ATROPINE SULFATE\DIPHENOXYLATE HYDROCHLORIDE
     Dosage: UNK, AS NEEDED (ONCE TOOK 3?4 TABLETS/AT THE SAME TIME)

REACTIONS (6)
  - Diplopia [Recovered/Resolved]
  - Fatigue [Recovered/Resolved]
  - Intentional product use issue [None]
  - Palpitations [Recovered/Resolved]
  - Dizziness [Recovered/Resolved]
  - Expired product administered [None]
